FAERS Safety Report 8379532-X (Version None)
Quarter: 2012Q1

REPORT INFORMATION
  Report Type: 
  Country: None (occurrence: None)
  Receive Date: 20120323
  Receipt Date: 20110603
  Transmission Date: 20120608
  Serious: Yes (Other)
  Sender: FDA-Public Use
  Company Number: 163-21880-11033129

PATIENT
  Age: 59 Year
  Sex: Female
  Weight: 76.7 kg

DRUGS (10)
  1. HYDROCODONE BITARTRATE [Concomitant]
  2. CALCIUM CARBONATE [Concomitant]
  3. VITAMIN B12 [Concomitant]
  4. MULTI-VITAMINS [Concomitant]
  5. BENTYL [Concomitant]
  6. REVLIMID [Suspect]
     Indication: MULTIPLE MYELOMA
     Dosage: 25 MG, 1 IN 1 D, PO; 20 MG, 2 IN 1 D, PO; 10 MG, 1 IN 1 D, PO; 5 MG, 1 IN 1 D, PO; 2.5 MG, 1 IN 2 D,
     Route: 048
     Dates: start: 20110101
  7. REVLIMID [Suspect]
     Indication: MULTIPLE MYELOMA
     Dosage: 25 MG, 1 IN 1 D, PO; 20 MG, 2 IN 1 D, PO; 10 MG, 1 IN 1 D, PO; 5 MG, 1 IN 1 D, PO; 2.5 MG, 1 IN 2 D,
     Route: 048
     Dates: start: 20090501
  8. REVLIMID [Suspect]
     Indication: MULTIPLE MYELOMA
     Dosage: 25 MG, 1 IN 1 D, PO; 20 MG, 2 IN 1 D, PO; 10 MG, 1 IN 1 D, PO; 5 MG, 1 IN 1 D, PO; 2.5 MG, 1 IN 2 D,
     Route: 048
     Dates: start: 20110401
  9. REVLIMID [Suspect]
     Indication: MULTIPLE MYELOMA
     Dosage: 25 MG, 1 IN 1 D, PO; 20 MG, 2 IN 1 D, PO; 10 MG, 1 IN 1 D, PO; 5 MG, 1 IN 1 D, PO; 2.5 MG, 1 IN 2 D,
     Route: 048
     Dates: start: 20110501, end: 20110603
  10. REVLIMID [Suspect]
     Indication: MULTIPLE MYELOMA
     Dosage: 25 MG, 1 IN 1 D, PO; 20 MG, 2 IN 1 D, PO; 10 MG, 1 IN 1 D, PO; 5 MG, 1 IN 1 D, PO; 2.5 MG, 1 IN 2 D,
     Route: 048
     Dates: start: 20081201

REACTIONS (4)
  - GASTRITIS [None]
  - MUSCLE SPASMS [None]
  - ABDOMINAL PAIN [None]
  - HEPATIC ENZYME INCREASED [None]
